FAERS Safety Report 13075392 (Version 3)
Quarter: 2018Q4

REPORT INFORMATION
  Report Type: Spontaneous
  Country: US (occurrence: US)
  Receive Date: 20161230
  Receipt Date: 20181113
  Transmission Date: 20190204
  Serious: Yes (Life-Threatening, Other)
  Sender: FDA-Public Use
  Company Number: US-ASTRAZENECA-2016SF36383

PATIENT
  Age: 823 Month
  Sex: Female

DRUGS (20)
  1. NEXIUM [Suspect]
     Active Substance: ESOMEPRAZOLE MAGNESIUM
     Indication: GASTROOESOPHAGEAL REFLUX DISEASE
     Route: 048
     Dates: start: 2011, end: 2014
  2. TRAMADOL. [Concomitant]
     Active Substance: TRAMADOL
  3. PROPOXYPHEN-APAP [Concomitant]
  4. TRAMADOL-ACETAMINOPHEN [Concomitant]
     Active Substance: ACETAMINOPHEN\TRAMADOL
  5. HYDROCHLOROTHIAZIDE. [Concomitant]
     Active Substance: HYDROCHLOROTHIAZIDE
  6. GABAPENTIN. [Concomitant]
     Active Substance: GABAPENTIN
  7. KLOR-CON [Concomitant]
     Active Substance: POTASSIUM CHLORIDE
  8. IBUPROFEN. [Concomitant]
     Active Substance: IBUPROFEN
  9. CARVEDILOL. [Concomitant]
     Active Substance: CARVEDILOL
  10. IRON [Concomitant]
     Active Substance: IRON
  11. NEXIUM [Suspect]
     Active Substance: ESOMEPRAZOLE MAGNESIUM
     Indication: GASTROOESOPHAGEAL REFLUX DISEASE
     Dosage: 40 MG
     Route: 048
  12. METFORMIN [Concomitant]
     Active Substance: METFORMIN HYDROCHLORIDE
  13. AMLODIPINE BESYLATE. [Concomitant]
     Active Substance: AMLODIPINE BESYLATE
  14. CARVEDILOL. [Concomitant]
     Active Substance: CARVEDILOL
  15. TYLENOL [Concomitant]
     Active Substance: ACETAMINOPHEN
     Indication: PAIN
  16. NEXIUM [Suspect]
     Active Substance: ESOMEPRAZOLE MAGNESIUM
     Indication: GASTROOESOPHAGEAL REFLUX DISEASE
     Route: 048
     Dates: start: 201101, end: 201406
  17. NEXIUM 24HR [Suspect]
     Active Substance: ESOMEPRAZOLE MAGNESIUM
     Indication: GASTROOESOPHAGEAL REFLUX DISEASE
     Route: 048
     Dates: start: 2014
  18. CRESTOR [Concomitant]
     Active Substance: ROSUVASTATIN CALCIUM
  19. DIOVAN [Concomitant]
     Active Substance: VALSARTAN
  20. FISH OIL [Concomitant]
     Active Substance: FISH OIL

REACTIONS (2)
  - Diabetic ketoacidosis [Unknown]
  - Chronic kidney disease [Not Recovered/Not Resolved]

NARRATIVE: CASE EVENT DATE: 201602
